FAERS Safety Report 7599668-0 (Version None)
Quarter: 2011Q3

REPORT INFORMATION
  Report Type: 
  Country: None (occurrence: None)
  Receive Date: 20110711
  Receipt Date: 20110628
  Transmission Date: 20111222
  Serious: Yes (Hospitalization)
  Sender: FDA-Public Use
  Company Number: IE-ELI_LILLY_AND_COMPANY-IE201106007936

PATIENT
  Age: 47 Year
  Sex: Female

DRUGS (7)
  1. LEXAPRO [Concomitant]
     Indication: OBSESSIVE-COMPULSIVE DISORDER
     Dosage: 10 MG, UNK
     Route: 048
     Dates: start: 20110201
  2. SEROQUEL [Concomitant]
     Indication: PSYCHOTIC DISORDER
     Dosage: 300 MG, QD
     Route: 048
     Dates: start: 20110201
  3. ZYPREXA [Suspect]
     Indication: PSYCHOTIC DISORDER
     Dosage: 10 MG, QD
     Route: 048
  4. ZYPREXA [Suspect]
     Dosage: 15 MG, QD
     Route: 048
  5. SEROQUEL [Concomitant]
     Dosage: 200 MG, QD
     Route: 048
     Dates: start: 20110526
  6. ZIMOVANE [Concomitant]
     Dosage: 7.5 MG, UNK
     Route: 048
     Dates: start: 20110201
  7. ZYPREXA [Suspect]
     Dosage: 20 MG, QD
     Route: 048

REACTIONS (1)
  - EPILEPSY [None]
